FAERS Safety Report 12485402 (Version 2)
Quarter: 2016Q3

REPORT INFORMATION
  Report Type: Spontaneous
  Country: IN (occurrence: IN)
  Receive Date: 20160621
  Receipt Date: 20160720
  Transmission Date: 20161109
  Serious: Yes (Death, Other)
  Sender: FDA-Public Use
  Company Number: IN-JNJFOC-20160616600

PATIENT
  Sex: Male
  Weight: 40 kg

DRUGS (8)
  1. LINEZOLID. [Concomitant]
     Active Substance: LINEZOLID
     Route: 065
  2. CAPREOMYCIN [Concomitant]
     Active Substance: CAPREOMYCIN
     Route: 065
  3. CLOFAZIMINE [Concomitant]
     Active Substance: CLOFAZIMINE
     Route: 065
  4. AMOXI-CLAV [Concomitant]
     Active Substance: AMOXICILLIN\CLAVULANATE POTASSIUM
     Route: 065
  5. RIFABUTIN. [Concomitant]
     Active Substance: RIFABUTIN
     Route: 065
  6. CYCLOSERINE. [Concomitant]
     Active Substance: CYCLOSERINE
     Route: 065
  7. BEDAQUILINE [Suspect]
     Active Substance: BEDAQUILINE
     Indication: TUBERCULOSIS
     Route: 065
     Dates: start: 20140430, end: 20141021
  8. LEVOFLOXACIN. [Concomitant]
     Active Substance: LEVOFLOXACIN
     Route: 065

REACTIONS (2)
  - Pulmonary tuberculosis [Fatal]
  - Treatment failure [Unknown]
